FAERS Safety Report 15215203 (Version 1)
Quarter: 2018Q3

REPORT INFORMATION
  Report Type: Spontaneous
  Country: US (occurrence: US)
  Receive Date: 20180730
  Receipt Date: 20180730
  Transmission Date: 20181010
  Serious: No
  Sender: FDA-Public Use
  Company Number: US-XTTRIUM LABORATORIES, INC-2052925

PATIENT
  Sex: Female

DRUGS (4)
  1. SCRUB CARE EXIDINE ?4 CHG [Suspect]
     Active Substance: CHLORHEXIDINE GLUCONATE
     Indication: PRODUCT USED FOR UNKNOWN INDICATION
     Route: 061
  2. EPI?CLENZ INSTANT HAND ANTISEPTIC [Interacting]
     Active Substance: ALCOHOL
  3. 70% ISOPROPYL RUBBING ALCOHOL [Interacting]
     Active Substance: ISOPROPYL ALCOHOL
  4. ENDURE 420 CIDA?STAT [Interacting]
     Active Substance: CHLORHEXIDINE GLUCONATE

REACTIONS (1)
  - Electric shock [Unknown]
